FAERS Safety Report 9119895 (Version 1)
Quarter: 2013Q1

REPORT INFORMATION
  Report Type: Spontaneous
  Country: FR (occurrence: FR)
  Receive Date: 20130226
  Receipt Date: 20130226
  Transmission Date: 20140127
  Serious: Yes (Other)
  Sender: FDA-Public Use
  Company Number: FR-PFIZER INC-2013066045

PATIENT
  Age: 85 Year
  Sex: Male

DRUGS (12)
  1. LYRICA [Suspect]
     Dosage: 25 MG, 1X/DAY
     Route: 048
     Dates: end: 20121115
  2. DUROGESIC [Suspect]
     Dosage: 1 DF, ONCE IN 3 DAYS
     Route: 062
     Dates: start: 20121018, end: 20121122
  3. CIRCADIN [Interacting]
     Indication: SLEEP DISORDER
     Dosage: 2 MG, 1X/DAY
     Route: 048
     Dates: start: 20121109, end: 20121115
  4. LEXOMIL [Interacting]
     Dosage: 0.5 DF, 1X/DAY
     Route: 048
     Dates: end: 20121115
  5. NOCTAMIDE [Interacting]
     Dosage: 1 MG, 1X/DAY
     Route: 048
  6. INSPRA [Concomitant]
     Dosage: 50 MG, 1X/DAY
     Route: 048
     Dates: start: 201208, end: 20121115
  7. TRIATEC [Concomitant]
     Dosage: 2.5 MG, 1X/DAY
     Route: 048
  8. LASILIX [Concomitant]
     Dosage: 500 MG, 1X/DAY
     Route: 048
  9. MODOPAR [Concomitant]
     Dosage: 1 DF, 3X/DAY
     Route: 048
  10. CARDENSIEL [Concomitant]
     Dosage: 1.25 MG, 1X/DAY
     Route: 048
  11. DIFFU K [Concomitant]
     Dosage: 1 DF/DAY
     Route: 048
  12. DAFALGAN [Concomitant]
     Dosage: 1000 MG, 3X/DAY
     Route: 048

REACTIONS (4)
  - Drug interaction [Recovered/Resolved]
  - Dyspnoea [Recovered/Resolved]
  - General physical health deterioration [Recovered/Resolved]
  - Dysphagia [Recovered/Resolved]
